FAERS Safety Report 4526497-4 (Version None)
Quarter: 2004Q4

REPORT INFORMATION
  Report Type: 
  Country: None (occurrence: None)
  Receive Date: 20041210
  Receipt Date: 20041126
  Transmission Date: 20050328
  Serious: No
  Sender: FDA-Public Use
  Company Number: A01200405462

PATIENT
  Age: 75 Year
  Sex: Male

DRUGS (1)
  1. XATRAL XL - (ALFUZOSIN HYDROCHLORIDE) - TABLET PR - 10 MG [Suspect]
     Dosage: 10 MG OD ORAL
     Route: 048
     Dates: start: 20040723, end: 20040831

REACTIONS (2)
  - CHEST PAIN [None]
  - EXERCISE TEST ABNORMAL [None]
